FAERS Safety Report 18286455 (Version 1)
Quarter: 2020Q3

REPORT INFORMATION
  Report Type: Spontaneous
  Country: US (occurrence: US)
  Receive Date: 20200920
  Receipt Date: 20200920
  Transmission Date: 20201103
  Serious: No
  Sender: FDA-Public Use
  Company Number: US-ASTRAZENECA-2020SF11617

PATIENT
  Sex: Female

DRUGS (1)
  1. FASENRA [Suspect]
     Active Substance: BENRALIZUMAB
     Indication: EOSINOPHILIA
     Route: 058
     Dates: start: 202007

REACTIONS (3)
  - Tongue discolouration [Unknown]
  - Oral candidiasis [Unknown]
  - Oropharyngeal pain [Unknown]
